FAERS Safety Report 25617814 (Version 1)
Quarter: 2025Q3

REPORT INFORMATION
  Report Type: Spontaneous
  Country: US (occurrence: None)
  Receive Date: 20250729
  Receipt Date: 20250729
  Transmission Date: 20251020
  Serious: Yes (Death)
  Sender: FDA-CTU
  Company Number: None

PATIENT
  Age: 44 Year
  Sex: Female

DRUGS (1)
  1. CEFTRIAXONE [Suspect]
     Active Substance: CEFTRIAXONE
     Dates: start: 20250726, end: 20250726

REACTIONS (4)
  - Dyspnoea [None]
  - Bradycardia [None]
  - Oxygen saturation decreased [None]
  - Nausea [None]

NARRATIVE: CASE EVENT DATE: 20250726
